FAERS Safety Report 9190660 (Version 3)
Quarter: 2013Q3

REPORT INFORMATION
  Report Type: Spontaneous
  Country: DK (occurrence: None)
  Receive Date: 20130322
  Receipt Date: 20130815
  Transmission Date: 20140515
  Serious: Yes (Hospitalization, Disabling, Other)
  Sender: FDA-Public Use
  Company Number: AUR-APL-2013-02536

PATIENT
  Age: 49 Year
  Sex: Male

DRUGS (2)
  1. LAMOTRIGINE [Suspect]
     Indication: NEURALGIA
     Route: 048
     Dates: start: 20101109
  2. LAMOTRIGINE [Suspect]
     Indication: PAIN IN EXTREMITY
     Route: 048
     Dates: start: 20101109

REACTIONS (24)
  - Fatigue [None]
  - Arthralgia [None]
  - Myalgia [None]
  - Pyrexia [None]
  - Rash pruritic [None]
  - Rash generalised [None]
  - Chills [None]
  - Malaise [None]
  - Osteoarthritis [None]
  - Rectal polyp [None]
  - Refusal of treatment by patient [None]
  - Drug hypersensitivity [None]
  - Weight decreased [None]
  - Arthralgia [None]
  - Condition aggravated [None]
  - Infection [None]
  - Carpal tunnel decompression [None]
  - Drug eruption [None]
  - General physical health deterioration [None]
  - Depressive symptom [None]
  - Toxicity to various agents [None]
  - White blood cell count increased [None]
  - Staphylococcal infection [None]
  - Atelectasis [None]
